FAERS Safety Report 25432475 (Version 1)
Quarter: 2025Q2

REPORT INFORMATION
  Report Type: Spontaneous
  Country: US (occurrence: US)
  Receive Date: 20250613
  Receipt Date: 20250613
  Transmission Date: 20250717
  Serious: Yes (Other)
  Sender: SERVIER
  Company Number: US-SERVIER-S25007959

PATIENT

DRUGS (1)
  1. VORANIGO [Suspect]
     Active Substance: VORASIDENIB
     Indication: Brain neoplasm
     Dosage: 40 MG, QD
     Route: 048
     Dates: start: 202412

REACTIONS (4)
  - Epilepsy [Not Recovered/Not Resolved]
  - Dizziness [Not Recovered/Not Resolved]
  - Tremor [Not Recovered/Not Resolved]
  - Oedema [Not Recovered/Not Resolved]

NARRATIVE: CASE EVENT DATE: 20250101
